FAERS Safety Report 6529637-0 (Version None)
Quarter: 2010Q1

REPORT INFORMATION
  Report Type: 
  Country: None (occurrence: None)
  Receive Date: 20100107
  Receipt Date: 20100105
  Transmission Date: 20100710
  Serious: Yes (Death)
  Sender: FDA-Public Use
  Company Number: US-ROCHE-677787

PATIENT
  Sex: Female

DRUGS (1)
  1. VESANOID [Suspect]
     Route: 065

REACTIONS (1)
  - DEATH [None]
